FAERS Safety Report 17537536 (Version 1)
Quarter: 2020Q1

REPORT INFORMATION
  Report Type: Spontaneous
  Country: US (occurrence: US)
  Receive Date: 20200305
  Receipt Date: 20200305
  Transmission Date: 20200409
  Serious: Yes (Hospitalization)
  Sender: FDA-Public Use
  Company Number: None

PATIENT
  Age: 16 Year
  Sex: Male

DRUGS (2)
  1. TIKAFTA [Concomitant]
  2. PULMOZYME [Suspect]
     Active Substance: DORNASE ALFA
     Indication: CYSTIC FIBROSIS LUNG
     Dosage: ?          OTHER STRENGTH:2.5MG/2.5ML;OTHER DOSE:1 VIAL;?
     Route: 055
     Dates: start: 20190611

REACTIONS (3)
  - Cystic fibrosis [None]
  - Therapy cessation [None]
  - Disease complication [None]

NARRATIVE: CASE EVENT DATE: 20200301
